FAERS Safety Report 8361408-5 (Version None)
Quarter: 2012Q2

REPORT INFORMATION
  Report Type: 
  Country: None (occurrence: None)
  Receive Date: 20120515
  Receipt Date: 20110819
  Transmission Date: 20120825
  Serious: No
  Sender: FDA-Public Use
  Company Number: US-ALEXION-A201101268

PATIENT
  Sex: Male
  Weight: 421 kg

DRUGS (5)
  1. SOLIRIS [Suspect]
     Dosage: 900 MG Q2W
     Route: 042
     Dates: start: 20110602
  2. SOLIRIS [Suspect]
     Indication: PAROXYSMAL NOCTURNAL HAEMOGLOBINURIA
     Dosage: 600 MG QW X 4
     Route: 042
     Dates: start: 20110505
  3. FOLIC ACID [Concomitant]
     Dosage: 1 MG QD
  4. COUMADIN [Concomitant]
     Indication: PORTAL VEIN THROMBOSIS
  5. PREDNISONE TAB [Concomitant]
     Dosage: UNK

REACTIONS (3)
  - FATIGUE [None]
  - BLOOD LACTATE DEHYDROGENASE INCREASED [None]
  - HAEMOLYSIS [None]
